FAERS Safety Report 8657230 (Version 2)
Quarter: 2012Q4

REPORT INFORMATION
  Report Type: 
  Country: US (occurrence: US)
  Receive Date: 20120710
  Receipt Date: 20121225
  Transmission Date: 20130627
  Serious: Yes (Other)
  Sender: FDA-Public Use
  Company Number: US-BIOGENIDEC-2012BI023864

PATIENT
  Sex: Female

DRUGS (1)
  1. TYSABRI [Suspect]
     Indication: MULTIPLE SCLEROSIS
     Route: 042
     Dates: start: 20071212, end: 20120605

REACTIONS (4)
  - Lung neoplasm malignant [Unknown]
  - Lymphoma [Unknown]
  - Bone cancer [Unknown]
  - Brain neoplasm malignant [Unknown]
